FAERS Safety Report 4865446-6 (Version None)
Quarter: 2005Q4

REPORT INFORMATION
  Report Type: 
  Country: None (occurrence: None)
  Receive Date: 20051223
  Receipt Date: 20051213
  Transmission Date: 20060501
  Serious: Yes (Hospitalization)
  Sender: FDA-Public Use
  Company Number: AU-ROCHE-428550

PATIENT
  Age: 28 Year
  Sex: Female
  Weight: 55 kg

DRUGS (1)
  1. MEFLOQUINE HCL [Suspect]
     Indication: PROPHYLAXIS
     Dosage: ONE DAY TREATMENT.
     Route: 048
     Dates: start: 20031203, end: 20031203

REACTIONS (3)
  - AGITATION [None]
  - ILLUSION [None]
  - PARANOIA [None]
